FAERS Safety Report 9774421 (Version 4)
Quarter: 2014Q2

REPORT INFORMATION
  Report Type: Spontaneous
  Country: DK (occurrence: DK)
  Receive Date: 20131220
  Receipt Date: 20140408
  Transmission Date: 20141212
  Serious: Yes (Disabling, Other)
  Sender: FDA-Public Use
  Company Number: DK-ROCHE-1322728

PATIENT
  Sex: Female

DRUGS (1)
  1. ROACTEMRA [Suspect]
     Indication: RHEUMATOID ARTHRITIS
     Route: 065
     Dates: start: 201011

REACTIONS (8)
  - Neoplasm malignant [Unknown]
  - Colon cancer [Unknown]
  - Metastases to lung [Unknown]
  - Metastases to bone [Unknown]
  - Pain in extremity [Unknown]
  - Metastases to liver [Unknown]
  - Aortic stenosis [Unknown]
  - Colon cancer [Not Recovered/Not Resolved]
